FAERS Safety Report 23509202 (Version 1)
Quarter: 2024Q1

REPORT INFORMATION
  Report Type: Spontaneous
  Country: US (occurrence: None)
  Receive Date: 20240209
  Receipt Date: 20240209
  Transmission Date: 20240410
  Serious: Yes (Hospitalization)
  Sender: FDA-Public Use
  Company Number: None

PATIENT
  Age: 83 Year
  Sex: Female

DRUGS (1)
  1. TACROLIMUS [Suspect]
     Active Substance: TACROLIMUS
     Indication: Renal transplant
     Dosage: OTHER QUANTITY : 2 CAP AM-1 CAP PM;?FREQUENCY : DAILY;?

REACTIONS (3)
  - Fluid retention [None]
  - Respiratory syncytial virus infection [None]
  - White blood cell disorder [None]

NARRATIVE: CASE EVENT DATE: 20231228
